FAERS Safety Report 9369434 (Version 1)
Quarter: 2013Q2

REPORT INFORMATION
  Report Type: Spontaneous
  Country: US (occurrence: US)
  Receive Date: 20130626
  Receipt Date: 20130626
  Transmission Date: 20140414
  Serious: Yes (Hospitalization)
  Sender: FDA-Public Use
  Company Number: US-BAYER-2013-078262

PATIENT
  Age: 42 Year
  Sex: Female

DRUGS (24)
  1. YASMIN [Suspect]
  2. BEYAZ [Suspect]
     Indication: CONTRACEPTION
  3. OCELLA [Suspect]
  4. FISH OIL [Concomitant]
  5. NIACIN [Concomitant]
  6. ASPIRIN [Concomitant]
  7. PROTONIX [Concomitant]
  8. GEMFIBROZIL [Concomitant]
  9. ENALAPRIL [Concomitant]
  10. TRICOR [Concomitant]
  11. ALLOPURINOL [Concomitant]
  12. XANAX [Concomitant]
  13. AMLODIPINE [Concomitant]
  14. POTASSIUM CHLORIDE [Concomitant]
  15. CYMBALTA [Concomitant]
  16. PANCRELIPASE [Concomitant]
  17. LANTUS [Concomitant]
  18. METOPROLOL [Concomitant]
  19. GABAPENTIN [Concomitant]
  20. PANTOPRAZOLE [Concomitant]
  21. ALPRAZOLAM [Concomitant]
  22. FENOFIBRATE [Concomitant]
  23. PHENERGAN [Concomitant]
  24. OXYCODONE [Concomitant]

REACTIONS (3)
  - Jugular vein thrombosis [None]
  - Subclavian vein thrombosis [None]
  - Deep vein thrombosis [None]
